FAERS Safety Report 20807802 (Version 1)
Quarter: 2022Q2

REPORT INFORMATION
  Report Type: Spontaneous
  Country: IT (occurrence: IT)
  Receive Date: 20220510
  Receipt Date: 20220510
  Transmission Date: 20220721
  Serious: Yes (Other)
  Sender: FDA-Public Use
  Company Number: IT-SHIONOGI, INC-2022000414

PATIENT
  Age: 25 Year
  Sex: Female
  Weight: 55 kg

DRUGS (1)
  1. SYMPROIC [Suspect]
     Active Substance: NALDEMEDINE
     Indication: Constipation
     Dosage: UNKNOWN
     Route: 048
     Dates: start: 20210604, end: 20210604

REACTIONS (3)
  - Diarrhoea [Recovered/Resolved]
  - Fatigue [Recovered/Resolved]
  - Dizziness [Recovered/Resolved]

NARRATIVE: CASE EVENT DATE: 20210604
